FAERS Safety Report 11828823 (Version 1)
Quarter: 2015Q4

REPORT INFORMATION
  Report Type: Spontaneous
  Country: US (occurrence: US)
  Receive Date: 20151211
  Receipt Date: 20151211
  Transmission Date: 20160305
  Serious: No
  Sender: FDA-Public Use
  Company Number: US-BAYER-2015-484881

PATIENT
  Age: 37 Year
  Sex: Male
  Weight: 121.9 kg

DRUGS (4)
  1. ST JOHNS WORT [Concomitant]
     Active Substance: ST. JOHN^S WORT
     Dosage: UNK
  2. CLARITIN [Suspect]
     Active Substance: LORATADINE
     Dosage: DAILY DOSE 2 DF
     Route: 048
  3. FLONASE [Concomitant]
     Active Substance: FLUTICASONE PROPIONATE
     Dosage: UNK
  4. CLARITIN [Suspect]
     Active Substance: LORATADINE
     Dosage: UNK

REACTIONS (1)
  - Extra dose administered [None]
